FAERS Safety Report 7006875-4 (Version None)
Quarter: 2010Q3

REPORT INFORMATION
  Report Type: 
  Country: None (occurrence: None)
  Receive Date: 20100922
  Receipt Date: 20100916
  Transmission Date: 20110219
  Serious: No
  Sender: FDA-Public Use
  Company Number: 2009BI028621

PATIENT
  Age: 51 Year
  Sex: Female

DRUGS (2)
  1. TYSABRI [Suspect]
     Indication: MULTIPLE SCLEROSIS
     Route: 042
     Dates: start: 20050222, end: 20050222
  2. TYSABRI [Suspect]
     Route: 042
     Dates: start: 20090324

REACTIONS (3)
  - ROAD TRAFFIC ACCIDENT [None]
  - SCOLIOSIS [None]
  - VISUAL IMPAIRMENT [None]
